FAERS Safety Report 11027063 (Version 2)
Quarter: 2015Q2

REPORT INFORMATION
  Report Type: Spontaneous
  Country: US (occurrence: US)
  Receive Date: 20150414
  Receipt Date: 20150525
  Transmission Date: 20150821
  Serious: No
  Sender: FDA-Public Use
  Company Number: US-JNJFOC-20121210850

PATIENT
  Age: 26 Year
  Sex: Female
  Weight: 61.24 kg

DRUGS (2)
  1. TRINESSA [Suspect]
     Active Substance: ETHINYL ESTRADIOL\NORGESTIMATE
     Indication: CONTRACEPTION
     Route: 065
     Dates: start: 201207
  2. TRINESSA [Suspect]
     Active Substance: ETHINYL ESTRADIOL\NORGESTIMATE
     Indication: CONTRACEPTION
     Dosage: FROM 2004 OR 2007
     Route: 065
     Dates: start: 200407

REACTIONS (6)
  - Nipple exudate bloody [Recovered/Resolved]
  - Vulvovaginal pruritus [Recovered/Resolved]
  - Fungal infection [Recovered/Resolved]
  - Inappropriate schedule of drug administration [Unknown]
  - Vaginal discharge [Recovered/Resolved]
  - Premenstrual syndrome [Recovered/Resolved]

NARRATIVE: CASE EVENT DATE: 201207
